FAERS Safety Report 25743648 (Version 1)
Quarter: 2025Q3

REPORT INFORMATION
  Report Type: Spontaneous
  Country: ZA (occurrence: ZA)
  Receive Date: 20250831
  Receipt Date: 20250831
  Transmission Date: 20251021
  Serious: Yes (Death, Other)
  Sender: CSL BEHRING
  Company Number: ZA-ROCHE-10000374146

PATIENT
  Age: 67 Year
  Sex: Male

DRUGS (1)
  1. MIRCERA [Suspect]
     Active Substance: METHOXY POLYETHYLENE GLYCOL-EPOETIN BETA
     Indication: Product used for unknown indication
     Route: 065

REACTIONS (16)
  - Death [Fatal]
  - Chronic kidney disease [Unknown]
  - Blood urea increased [Unknown]
  - Blood creatinine increased [Unknown]
  - Blood calcium decreased [Unknown]
  - Blood phosphorus increased [Unknown]
  - Blood cholesterol decreased [Unknown]
  - Globulins increased [Unknown]
  - Blood iron decreased [Unknown]
  - Transferrin decreased [Unknown]
  - Haemoglobin decreased [Unknown]
  - Mean cell volume increased [Unknown]
  - CD4 lymphocytes decreased [Unknown]
  - Blood bicarbonate decreased [Unknown]
  - Blood parathyroid hormone increased [Unknown]
  - Gamma-glutamyltransferase increased [Unknown]

NARRATIVE: CASE EVENT DATE: 20250103
